FAERS Safety Report 8611873-0 (Version None)
Quarter: 2012Q3

REPORT INFORMATION
  Report Type: 
  Country: None (occurrence: None)
  Receive Date: 20120809
  Receipt Date: 20120725
  Transmission Date: 20120928
  Serious: Yes (Hospitalization)
  Sender: FDA-Public Use
  Company Number: 1345980

PATIENT
  Age: 48 Year
  Sex: Male

DRUGS (4)
  1. BLEOMYCIN SULFATE [Suspect]
     Indication: HODGKIN'S DISEASE
  2. DACARBAZINE [Suspect]
     Indication: HODGKIN'S DISEASE
  3. VINBLASTINE SULFATE [Suspect]
     Indication: HODGKIN'S DISEASE
  4. DOXORUBICIN HYDROCHLORIDE [Suspect]
     Indication: HODGKIN'S DISEASE

REACTIONS (14)
  - ONYCHOMYCOSIS [None]
  - CHEST DISCOMFORT [None]
  - LYMPHADENOPATHY MEDIASTINAL [None]
  - TACHYCARDIA [None]
  - OEDEMA PERIPHERAL [None]
  - PERICARDITIS [None]
  - CARDIOMEGALY [None]
  - JOINT SWELLING [None]
  - NAIL AVULSION [None]
  - SEROSITIS [None]
  - COUGH [None]
  - PERICARDIAL EFFUSION [None]
  - APHTHOUS STOMATITIS [None]
  - NEUTROPENIA [None]
